FAERS Safety Report 16167589 (Version 1)
Quarter: 2019Q2

REPORT INFORMATION
  Report Type: Report from Study
  Country: RU (occurrence: RU)
  Receive Date: 20190408
  Receipt Date: 20190408
  Transmission Date: 20190711
  Serious: Yes (Death)
  Sender: FDA-Public Use
  Company Number: RU-SUN PHARMACEUTICAL INDUSTRIES LTD-2018R1-187153

PATIENT

DRUGS (1)
  1. PROPAFENONE. [Suspect]
     Active Substance: PROPAFENONE
     Indication: PRODUCT USED FOR UNKNOWN INDICATION
     Route: 065

REACTIONS (1)
  - Overdose [Fatal]
